FAERS Safety Report 4619898-7 (Version None)
Quarter: 2005Q1

REPORT INFORMATION
  Report Type: 
  Country: None (occurrence: None)
  Receive Date: 20050321
  Receipt Date: 20050321
  Transmission Date: 20050727
  Serious: Yes (Life-Threatening, Hospitalization, Disabling)
  Sender: FDA-Public Use
  Company Number: None

PATIENT
  Age: 34 Year
  Sex: Female
  Weight: 75.7507 kg

DRUGS (2)
  1. PROTOPIC [Suspect]
     Indication: ECZEMA
     Dosage: DAILY
     Dates: start: 20040308, end: 20040722
  2. ELIDEL [Suspect]
     Indication: ECZEMA
     Dosage: DAILY
     Dates: start: 20040322, end: 20040722

REACTIONS (3)
  - ACUTE LEUKAEMIA [None]
  - DRUG HYPERSENSITIVITY [None]
  - MYELOID LEUKAEMIA [None]
